FAERS Safety Report 19952896 (Version 1)
Quarter: 2021Q4

REPORT INFORMATION
  Report Type: Spontaneous
  Country: US (occurrence: US)
  Receive Date: 20211012
  Receipt Date: 20211012
  Transmission Date: 20220303
  Serious: Yes (Other)
  Sender: FDA-Public Use
  Company Number: None

PATIENT
  Age: 49 Year
  Sex: Female
  Weight: 82 kg

DRUGS (1)
  1. SULFAMETHIZOLE\TRIMETHOPRIM [Suspect]
     Active Substance: SULFAMETHIZOLE\TRIMETHOPRIM
     Indication: Hidradenitis
     Route: 048
     Dates: start: 20210727, end: 20210811

REACTIONS (1)
  - Rash [None]

NARRATIVE: CASE EVENT DATE: 20210811
